FAERS Safety Report 7113725-4 (Version None)
Quarter: 2011Q1

REPORT INFORMATION
  Report Type: 
  Country: None (occurrence: None)
  Receive Date: 20101119
  Receipt Date: 20101111
  Transmission Date: 20110831
  Serious: Yes (Other)
  Sender: FDA-Public Use
  Company Number: AU-WATSON-2010-14914

PATIENT
  Age: 29 Year
  Sex: Female

DRUGS (1)
  1. LEVORA 0.15/30-21 [Suspect]
     Indication: ORAL CONTRACEPTION
     Dosage: UNK
     Route: 048

REACTIONS (2)
  - RETINAL VEIN OCCLUSION [None]
  - CEREBRAL VENOUS THROMBOSIS [None]
